FAERS Safety Report 6693788-0 (Version None)
Quarter: 2010Q2

REPORT INFORMATION
  Report Type: 
  Country: None (occurrence: None)
  Receive Date: 20100423
  Receipt Date: 20100414
  Transmission Date: 20101027
  Serious: Yes (Other)
  Sender: FDA-Public Use
  Company Number: JP-PFIZER INC-2010048677

PATIENT
  Age: 65 Year
  Sex: Male

DRUGS (3)
  1. ZYVOX [Suspect]
     Dosage: 600 MG, 2X/DAY
     Route: 048
  2. ALENDRONATE SODIUM [Concomitant]
     Route: 048
  3. CRAVIT [Concomitant]
     Route: 048

REACTIONS (3)
  - DYSGEUSIA [None]
  - DYSKINESIA [None]
  - STOMATITIS [None]
